FAERS Safety Report 7704787-1 (Version None)
Quarter: 2011Q3

REPORT INFORMATION
  Report Type: 
  Country: None (occurrence: None)
  Receive Date: 20110823
  Receipt Date: 20110818
  Transmission Date: 20111222
  Serious: Yes (Hospitalization)
  Sender: FDA-Public Use
  Company Number: FR-PFIZER INC-2011190644

PATIENT
  Age: 88 Year
  Sex: Female

DRUGS (7)
  1. NITRODERM [Concomitant]
     Dosage: 10 MG, EVERY 24 HOURS
  2. BISOPROLOL FUMARATE [Concomitant]
  3. POTASSIUM CHLORIDE [Concomitant]
  4. LASIX [Concomitant]
  5. ATORVASTATIN CALCIUM [Suspect]
     Dosage: UNK
  6. KEPPRA [Suspect]
     Dosage: 500 MG, 2X/DAY
     Route: 048
     Dates: start: 20090101, end: 20110401
  7. ASPIRIN [Concomitant]

REACTIONS (5)
  - FALL [None]
  - THROMBOCYTOPENIA [None]
  - ANTINUCLEAR ANTIBODY POSITIVE [None]
  - CONFUSIONAL STATE [None]
  - LIVER INJURY [None]
